FAERS Safety Report 6875397-3 (Version None)
Quarter: 2010Q3

REPORT INFORMATION
  Report Type: 
  Country: None (occurrence: None)
  Receive Date: 20100727
  Receipt Date: 20100719
  Transmission Date: 20110219
  Serious: Yes (Other)
  Sender: FDA-Public Use
  Company Number: US-JNJFOC-20100508023

PATIENT
  Age: 60 Year
  Sex: Female

DRUGS (1)
  1. NUCYNTA [Suspect]
     Indication: SPINAL OSTEOARTHRITIS
     Route: 048

REACTIONS (5)
  - BALANCE DISORDER [None]
  - DIZZINESS [None]
  - EUPHORIC MOOD [None]
  - HYPOAESTHESIA [None]
  - MENTAL STATUS CHANGES [None]
